FAERS Safety Report 8377318-3 (Version None)
Quarter: 2012Q2

REPORT INFORMATION
  Report Type: 
  Country: None (occurrence: None)
  Receive Date: 20120522
  Receipt Date: 20120509
  Transmission Date: 20120825
  Serious: Yes (Disabling, Other)
  Sender: FDA-Public Use
  Company Number: US-ROCHE-1056952

PATIENT
  Sex: Female
  Weight: 69.4 kg

DRUGS (9)
  1. CALCIUM CARBONATE [Concomitant]
     Dosage: DOSE: 250-125 MG, DAILY
     Route: 048
  2. ZELBORAF [Suspect]
     Indication: MALIGNANT MELANOMA
     Route: 048
     Dates: start: 20111123
  3. ZELBORAF [Suspect]
  4. MESALAMINE [Concomitant]
     Route: 048
  5. ZELBORAF [Suspect]
     Route: 048
  6. ZELBORAF [Suspect]
  7. FOSAMAX [Concomitant]
     Indication: OSTEOPENIA
     Route: 048
  8. COMPAZINE [Concomitant]
     Indication: NAUSEA
     Dosage: DOSE REPORTED AS 10
     Route: 048
  9. ZELBORAF [Suspect]

REACTIONS (8)
  - FATIGUE [None]
  - METASTASIS [None]
  - DECREASED APPETITE [None]
  - NAUSEA [None]
  - WEIGHT DECREASED [None]
  - RESTLESS LEGS SYNDROME [None]
  - MYALGIA [None]
  - ARTHRALGIA [None]
